FAERS Safety Report 9186170 (Version 1)
Quarter: 2013Q1

REPORT INFORMATION
  Report Type: Spontaneous
  Country: US (occurrence: US)
  Receive Date: 20130325
  Receipt Date: 20130325
  Transmission Date: 20140127
  Serious: Yes (Hospitalization)
  Sender: FDA-Public Use
  Company Number: US-GLAXOSMITHKLINE-A1016184A

PATIENT
  Age: 57 Year
  Sex: Male

DRUGS (5)
  1. ADVAIR [Suspect]
     Indication: CHRONIC OBSTRUCTIVE PULMONARY DISEASE
     Dosage: 1PUFF TWICE PER DAY
     Route: 055
     Dates: start: 2010
  2. FIORICET [Concomitant]
  3. VICODIN [Concomitant]
  4. SOMA [Concomitant]
  5. VOLTAREN [Concomitant]

REACTIONS (2)
  - Lung neoplasm malignant [Recovering/Resolving]
  - Dyspnoea [Recovering/Resolving]
